FAERS Safety Report 8814744 (Version 1)
Quarter: 2012Q4

REPORT INFORMATION
  Report Type: 
  Country: TR (occurrence: TR)
  Receive Date: 20120928
  Receipt Date: 20120928
  Transmission Date: 20130627
  Serious: Yes (Hospitalization, Other)
  Sender: FDA-Public Use
  Company Number: TR-PFIZER INC-2012236021

PATIENT
  Age: 15 Year
  Sex: Male
  Weight: 70 kg

DRUGS (1)
  1. GENOTROPIN [Suspect]
     Indication: GROWTH HORMONE DEFICIENCY
     Dosage: 1.8 mg, 1x/day
     Dates: start: 20110603

REACTIONS (4)
  - Fall [Unknown]
  - Joint dislocation [Unknown]
  - Pain in extremity [Not Recovered/Not Resolved]
  - Gait disturbance [Unknown]
